FAERS Safety Report 8586431 (Version 4)
Quarter: 2012Q4

REPORT INFORMATION
  Report Type: Report from Study
  Country: JP (occurrence: JP)
  Receive Date: 20120530
  Receipt Date: 20121227
  Transmission Date: 20130627
  Serious: Yes (Hospitalization)
  Sender: FDA-Public Use
  Company Number: JP-EISAI INC-E7389-02502-CLI-JP

PATIENT
  Age: 32 Year
  Sex: Male
  Weight: 59 kg

DRUGS (1)
  1. E7389 (BOLD) [Suspect]
     Indication: LEIOMYOSARCOMA
     Route: 041
     Dates: start: 20120406, end: 20121128

REACTIONS (1)
  - Pulmonary embolism [Recovering/Resolving]
